FAERS Safety Report 20611923 (Version 1)
Quarter: 2022Q1

REPORT INFORMATION
  Report Type: Spontaneous
  Country: CN (occurrence: None)
  Receive Date: 20220318
  Receipt Date: 20220318
  Transmission Date: 20220423
  Serious: Yes (Other)
  Sender: FDA-Public Use
  Company Number: 2021A901926

PATIENT
  Sex: Male

DRUGS (1)
  1. SYMBICORT [Suspect]
     Active Substance: BUDESONIDE\FORMOTEROL FUMARATE DIHYDRATE
     Indication: Chronic obstructive pulmonary disease
     Dosage: 320UG AND 9UG, AND PRESCRIBED ONE INHALATION SEPARATELY IN THE MORNING AFTERNOON AND EVENING
     Route: 055

REACTIONS (3)
  - Disease progression [Unknown]
  - Pulmonary function test increased [Unknown]
  - Drug ineffective [Unknown]
